FAERS Safety Report 4712904-0 (Version None)
Quarter: 2005Q3

REPORT INFORMATION
  Report Type: 
  Country: None (occurrence: None)
  Receive Date: 20050713
  Receipt Date: 20050510
  Transmission Date: 20060218
  Serious: Yes (Hospitalization)
  Sender: FDA-Public Use
  Company Number: 2005UW07270

PATIENT
  Age: 21662 Day
  Sex: Male
  Weight: 108.6 kg

DRUGS (5)
  1. CRESTOR [Suspect]
     Indication: BLOOD CHOLESTEROL INCREASED
     Route: 048
     Dates: start: 20041004
  2. INDOMETHACIN [Concomitant]
     Indication: GOUT
  3. FELODIPINE [Concomitant]
  4. TERAZOSIN HCL [Concomitant]
  5. ATENOLOL [Concomitant]
     Dosage: 50/25

REACTIONS (3)
  - DIALYSIS [None]
  - GLOMERULONEPHRITIS [None]
  - RENAL FAILURE [None]
